FAERS Safety Report 12428732 (Version 2)
Quarter: 2016Q2

REPORT INFORMATION
  Report Type: Spontaneous
  Country: JP (occurrence: JP)
  Receive Date: 20160602
  Receipt Date: 20160610
  Transmission Date: 20160815
  Serious: Yes (Death)
  Sender: FDA-Public Use
  Company Number: JP-NOVOPROD-494159

PATIENT
  Age: 65 Year
  Sex: Male
  Weight: 48 kg

DRUGS (2)
  1. NOVOEIGHT 2000 IU [Suspect]
     Active Substance: TUROCTOCOG ALFA
     Indication: FACTOR VIII DEFICIENCY
     Dosage: 2000 IU, QD
     Route: 042
     Dates: start: 201602, end: 20160525
  2. NOVOEIGHT 2000 IU [Suspect]
     Active Substance: TUROCTOCOG ALFA
     Indication: PROPHYLAXIS

REACTIONS (2)
  - Lung neoplasm malignant [Fatal]
  - Multiple organ dysfunction syndrome [Fatal]
